FAERS Safety Report 5959701-6 (Version None)
Quarter: 2008Q4

REPORT INFORMATION
  Report Type: 
  Country: None (occurrence: None)
  Receive Date: 20081119
  Receipt Date: 20081119
  Transmission Date: 20090506
  Serious: Yes (Life-Threatening)
  Sender: FDA-Public Use
  Company Number: None

PATIENT
  Sex: Male
  Weight: 68 kg

DRUGS (13)
  1. LORAZEPAM [Suspect]
     Indication: ANXIETY
     Dosage: 4MG/HR IV
     Route: 042
     Dates: start: 20080526, end: 20080601
  2. LORAZEPAM [Suspect]
     Indication: DRUG WITHDRAWAL MAINTENANCE THERAPY
     Dosage: 4MG/HR IV
     Route: 042
     Dates: start: 20080526, end: 20080601
  3. HYDROMORPHONE HCL [Concomitant]
  4. SUCCINYLATE [Concomitant]
  5. KEPPRA [Concomitant]
  6. HALOPERIDOL [Concomitant]
  7. FOLIC ACID [Concomitant]
  8. THIAMINE HCL [Concomitant]
  9. OXAZEPAM [Concomitant]
  10. QUETIAPINE FUMARATE [Concomitant]
  11. LABETALOL HCL [Concomitant]
  12. FENTANYL [Concomitant]
  13. METOPROLOL [Concomitant]

REACTIONS (4)
  - AGITATION [None]
  - DISORIENTATION [None]
  - DRUG WITHDRAWAL SYNDROME [None]
  - SEDATION [None]
